FAERS Safety Report 5375776-X (Version None)
Quarter: 2007Q2

REPORT INFORMATION
  Report Type: 
  Country: None (occurrence: None)
  Receive Date: 20070628
  Receipt Date: 20070615
  Transmission Date: 20071010
  Serious: Yes (Disabling)
  Sender: FDA-Public Use
  Company Number: ABNYL-07-0527

PATIENT
  Sex: Female

DRUGS (11)
  1. ABRAXANE [Suspect]
     Indication: BREAST CANCER METASTATIC
     Dosage: 100 MG/M2 (DAY 14, DAY 8, Q 21 DAYS), INTRAVENOUS
     Route: 042
     Dates: start: 20050706, end: 20070418
  2. NEXIUM [Concomitant]
  3. AROMASIN [Concomitant]
  4. XELODA [Concomitant]
  5. LEXAPRO [Concomitant]
  6. POTASSIUM (POTASSIUM) [Concomitant]
  7. COLACE CAPS (DOCUSATE SODIUM) [Concomitant]
  8. DURAGESIC-100 [Concomitant]
  9. PERCOCET [Concomitant]
  10. LUNESTA [Concomitant]
  11. COMPAZINE (PROCHLORPERAZINE MALEATE) [Concomitant]

REACTIONS (1)
  - FACIAL PALSY [None]
